FAERS Safety Report 12197720 (Version 2)
Quarter: 2016Q2

REPORT INFORMATION
  Report Type: Spontaneous
  Country: US (occurrence: US)
  Receive Date: 20160322
  Receipt Date: 20160406
  Transmission Date: 20160815
  Serious: Yes (Death)
  Sender: FDA-Public Use
  Company Number: US-BEH-2016060205

PATIENT
  Sex: Male
  Weight: 90 kg

DRUGS (26)
  1. CYMBALTA [Concomitant]
     Active Substance: DULOXETINE HYDROCHLORIDE
  2. PLAQUENIL [Concomitant]
     Active Substance: HYDROXYCHLOROQUINE SULFATE
  3. ZYRTEC [Concomitant]
     Active Substance: CETIRIZINE HYDROCHLORIDE
  4. CALCIUM CITRATE+VITAMIN D [Concomitant]
  5. HIZENTRA [Suspect]
     Active Substance: HUMAN IMMUNOGLOBULIN G
     Indication: IMMUNODEFICIENCY COMMON VARIABLE
     Dosage: STRENGTH OF DOSAGE FORM: 4GM 20ML VIALS ; START DATE ??-MAY-2014
     Route: 058
  6. EPIPEN [Concomitant]
     Active Substance: EPINEPHRINE
  7. SINGULAIR [Concomitant]
     Active Substance: MONTELUKAST SODIUM
  8. RECLAST [Concomitant]
     Active Substance: ZOLEDRONIC ACID
  9. ALBUTEROL. [Concomitant]
     Active Substance: ALBUTEROL
  10. FISH OIL [Concomitant]
     Active Substance: FISH OIL
  11. ACETAMINOPHEN. [Concomitant]
     Active Substance: ACETAMINOPHEN
  12. LIDOCAINE/PRILOCAINE [Concomitant]
  13. AVODART [Concomitant]
     Active Substance: DUTASTERIDE
  14. POTASSIUM CL [Concomitant]
     Active Substance: POTASSIUM CHLORIDE
  15. VITAMIN D3 [Concomitant]
     Active Substance: CHOLECALCIFEROL
  16. FIBER-TABS [Concomitant]
  17. BACTRIM [Concomitant]
     Active Substance: SULFAMETHOXAZOLE\TRIMETHOPRIM
  18. REQUIP [Concomitant]
     Active Substance: ROPINIROLE HYDROCHLORIDE
  19. PREDNISONE. [Concomitant]
     Active Substance: PREDNISONE
  20. FINASTERIDE. [Concomitant]
     Active Substance: FINASTERIDE
  21. CLONAZEPAM. [Concomitant]
     Active Substance: CLONAZEPAM
  22. LIDOCAINE. [Concomitant]
     Active Substance: LIDOCAINE
  23. ADVAIR HFA [Concomitant]
     Active Substance: FLUTICASONE PROPIONATE\SALMETEROL XINAFOATE
  24. DIPHENHYDRAMINE. [Concomitant]
     Active Substance: DIPHENHYDRAMINE
  25. DILTIAZEM [Concomitant]
     Active Substance: DILTIAZEM
  26. TRIAMTERINE-HCTZ [Concomitant]

REACTIONS (1)
  - Respiratory failure [Fatal]
